FAERS Safety Report 13673475 (Version 1)
Quarter: 2017Q2

REPORT INFORMATION
  Report Type: Spontaneous
  Country: US (occurrence: US)
  Receive Date: 20170621
  Receipt Date: 20170621
  Transmission Date: 20170830
  Serious: No
  Sender: FDA-Public Use
  Company Number: US-ALLERGAN-1709560US

PATIENT
  Age: 24 Year
  Sex: Female
  Weight: 84.81 kg

DRUGS (2)
  1. LILETTA [Suspect]
     Active Substance: LEVONORGESTREL
     Indication: PRODUCT USED FOR UNKNOWN INDICATION
     Dosage: 52 MG
     Route: 015
     Dates: start: 20170118, end: 20170118
  2. LILETTA [Suspect]
     Active Substance: LEVONORGESTREL
     Dosage: 52-MG
     Route: 015
     Dates: start: 20170213

REACTIONS (2)
  - Vaginal haemorrhage [Unknown]
  - Device expulsion [Recovered/Resolved with Sequelae]

NARRATIVE: CASE EVENT DATE: 2017
